FAERS Safety Report 17665054 (Version 4)
Quarter: 2020Q4

REPORT INFORMATION
  Report Type: Report from Study
  Country: US (occurrence: US)
  Receive Date: 20200414
  Receipt Date: 20201208
  Transmission Date: 20210113
  Serious: Yes (Life-Threatening, Hospitalization, Other)
  Sender: FDA-Public Use
  Company Number: US-ASTELLAS-2019US045167

PATIENT
  Age: 14 Year
  Sex: Female

DRUGS (2)
  1. ASP2215 [Suspect]
     Active Substance: GILTERITINIB
     Indication: ACUTE MYELOID LEUKAEMIA
     Route: 048
     Dates: start: 20191022
  2. ASP2215 [Suspect]
     Active Substance: GILTERITINIB
     Route: 048

REACTIONS (15)
  - Pancreatitis [Unknown]
  - Posterior reversible encephalopathy syndrome [Unknown]
  - Menstruation irregular [Unknown]
  - Transfusion related complication [Unknown]
  - Nephropathy [Unknown]
  - Iron overload [Unknown]
  - Product use issue [Unknown]
  - Epistaxis [Unknown]
  - Haemophagocytic lymphohistiocytosis [Unknown]
  - White blood cell count abnormal [Unknown]
  - Blood count abnormal [Unknown]
  - Proteinuria [Unknown]
  - Fatigue [Unknown]
  - Renal disorder [Unknown]
  - Herpes virus infection [Unknown]

NARRATIVE: CASE EVENT DATE: 20191022
